FAERS Safety Report 5515380-3 (Version None)
Quarter: 2007Q4

REPORT INFORMATION
  Report Type: 
  Country: None (occurrence: None)
  Receive Date: 20071109
  Receipt Date: 20071029
  Transmission Date: 20080405
  Serious: Yes (Hospitalization)
  Sender: FDA-Public Use
  Company Number: 100#08#2007-04526

PATIENT
  Age: 70 Year
  Sex: Female

DRUGS (1)
  1. DOXYCYCLINE [Suspect]
     Indication: UPPER RESPIRATORY TRACT INFECTION BACTERIAL
     Dosage: 200 MG ORAL
     Route: 048

REACTIONS (4)
  - AMNESIA [None]
  - HEADACHE [None]
  - NAUSEA [None]
  - VOMITING [None]
